FAERS Safety Report 9324459 (Version 2)
Quarter: 2013Q3

REPORT INFORMATION
  Report Type: Spontaneous
  Country: US (occurrence: US)
  Receive Date: 20130603
  Receipt Date: 20130723
  Transmission Date: 20140515
  Serious: No
  Sender: FDA-Public Use
  Company Number: US-009507513-1305USA014676

PATIENT
  Age: 4 Year
  Sex: Female
  Weight: 16.78 kg

DRUGS (2)
  1. CLARITIN CHEWABLE TABLETS [Suspect]
     Indication: SEASONAL ALLERGY
     Dosage: 5 MG, QAM
     Route: 048
     Dates: start: 20130509, end: 20130512
  2. CLARITIN CHEWABLE TABLETS [Suspect]
     Indication: MEDICAL OBSERVATION
     Dosage: 5 MG, ONCE
     Route: 048
     Dates: start: 20130514

REACTIONS (1)
  - Sleep terror [Not Recovered/Not Resolved]
